FAERS Safety Report 19468534 (Version 1)
Quarter: 2021Q2

REPORT INFORMATION
  Report Type: Report from Study
  Country: CO (occurrence: CO)
  Receive Date: 20210628
  Receipt Date: 20210628
  Transmission Date: 20210717
  Serious: Yes (Hospitalization, Other)
  Sender: FDA-Public Use
  Company Number: CO-COLLEGIUM PHARMACEUTICAL, INC.-2021CGM00739

PATIENT
  Age: 90 Year
  Sex: Female

DRUGS (2)
  1. TAPENTADOL [Suspect]
     Active Substance: TAPENTADOL
     Indication: ARTHRALGIA
  2. TAPENTADOL [Suspect]
     Active Substance: TAPENTADOL
     Indication: PAIN
     Dosage: 1 DOSAGE FORM, 1X/DAY

REACTIONS (3)
  - Anal haemorrhage [Unknown]
  - Coagulopathy [Unknown]
  - Cardiac disorder [Unknown]
